FAERS Safety Report 6344371-8 (Version None)
Quarter: 2009Q3

REPORT INFORMATION
  Report Type: 
  Country: None (occurrence: None)
  Receive Date: 20090903
  Receipt Date: 20090817
  Transmission Date: 20100115
  Serious: Yes (Death)
  Sender: FDA-Public Use
  Company Number: 2008AL012539

PATIENT
  Age: 68 Year
  Sex: Male

DRUGS (25)
  1. DIGOXIN [Suspect]
     Dosage: 0.25MG, DAILY, PO
     Route: 048
     Dates: start: 20000401, end: 20090713
  2. LEVOTHYROXINE SODIUM [Concomitant]
  3. QUINAPRIL [Concomitant]
  4. KLOR-CON [Concomitant]
  5. LIPITOR [Concomitant]
  6. ISOSORBIDE [Concomitant]
  7. METOPROLOL TARTRATE [Concomitant]
  8. WARFARIN SODIUM [Concomitant]
  9. GLIPIZIDE [Concomitant]
  10. METFORMIN HCL [Concomitant]
  11. FUROSEMIDE [Concomitant]
  12. ACCUPRIL [Concomitant]
  13. TOPROL-XL [Concomitant]
  14. IBUPROFEN [Concomitant]
  15. PREDNISONE [Concomitant]
  16. ROXICODONE [Concomitant]
  17. GLUCOTROL [Concomitant]
  18. AVANDIA [Concomitant]
  19. GLUCOPHAGE [Concomitant]
  20. NEURONTIN [Concomitant]
  21. DIAZEPAM [Concomitant]
  22. OXYCODONE [Concomitant]
  23. HYDROCODONE [Concomitant]
  24. FLOMAX [Concomitant]
  25. BAYCOL [Concomitant]

REACTIONS (13)
  - ACUTE PULMONARY OEDEMA [None]
  - AGITATION [None]
  - ANHEDONIA [None]
  - ARRHYTHMIA [None]
  - CARDIAC FAILURE [None]
  - CARDIOMYOPATHY [None]
  - CONFUSIONAL STATE [None]
  - DECREASED APPETITE [None]
  - ECONOMIC PROBLEM [None]
  - EXPOSURE TO TOXIC AGENT [None]
  - INJURY [None]
  - PAIN [None]
  - UNEVALUABLE EVENT [None]
